FAERS Safety Report 16345053 (Version 1)
Quarter: 2019Q2

REPORT INFORMATION
  Report Type: Spontaneous
  Country: DE (occurrence: DE)
  Receive Date: 20190523
  Receipt Date: 20190523
  Transmission Date: 20190711
  Serious: Yes (Other)
  Sender: FDA-Public Use
  Company Number: DE-SA-2019SA134422

PATIENT
  Age: 26 Year
  Sex: Female

DRUGS (2)
  1. LEMTRADA [Suspect]
     Active Substance: ALEMTUZUMAB
     Dosage: UNK
     Dates: start: 20180507, end: 20180509
  2. LEMTRADA [Suspect]
     Active Substance: ALEMTUZUMAB
     Indication: MULTIPLE SCLEROSIS
     Dosage: UNK
     Route: 041
     Dates: start: 20170329, end: 20170404

REACTIONS (12)
  - Circulatory collapse [Unknown]
  - Multiple sclerosis [Unknown]
  - Paraesthesia [Unknown]
  - Gait disturbance [Unknown]
  - Romberg test positive [Unknown]
  - Somnolence [Unknown]
  - Focal dyscognitive seizures [Unknown]
  - Balance disorder [Unknown]
  - Facial paresis [Unknown]
  - Psychomotor retardation [Unknown]
  - Lymphocyte count abnormal [Unknown]
  - Dysarthria [Unknown]

NARRATIVE: CASE EVENT DATE: 20180511
